FAERS Safety Report 6389705-3 (Version None)
Quarter: 2009Q4

REPORT INFORMATION
  Report Type: 
  Country: None (occurrence: None)
  Receive Date: 20091002
  Receipt Date: 20091002
  Transmission Date: 20100525
  Serious: No
  Sender: FDA-Public Use
  Company Number: None

PATIENT
  Age: 34 Year
  Sex: Female
  Weight: 62.1428 kg

DRUGS (4)
  1. CREST PROHEALTH TOOTHPASTE [Suspect]
     Indication: DENTAL DISORDER PROPHYLAXIS
     Dosage: NORMAL 2X DAY PO
     Route: 048
     Dates: start: 20080107, end: 20090925
  2. CREST PROHEALTH TOOTHPASTE [Suspect]
     Indication: GINGIVITIS
     Dosage: NORMAL 2X DAY PO
     Route: 048
     Dates: start: 20080107, end: 20090925
  3. CREST PROHEALH MOUTHWASH [Suspect]
     Indication: DENTAL DISORDER PROPHYLAXIS
     Dosage: 1 TBSP 2X DAY PO
     Route: 048
     Dates: start: 20080107, end: 20090925
  4. CREST PROHEALH MOUTHWASH [Suspect]
     Indication: GINGIVITIS
     Dosage: 1 TBSP 2X DAY PO
     Route: 048
     Dates: start: 20080107, end: 20090925

REACTIONS (2)
  - GINGIVAL PAIN [None]
  - TOOTHACHE [None]
